FAERS Safety Report 9931670 (Version 1)
Quarter: 2014Q1

REPORT INFORMATION
  Report Type: Spontaneous
  Country: US (occurrence: None)
  Receive Date: 20140227
  Receipt Date: 20140227
  Transmission Date: 20141002
  Serious: Yes (Other)
  Sender: FDA-Public Use
  Company Number: None

PATIENT
  Age: 56 Year
  Sex: Female
  Weight: 72.58 kg

DRUGS (5)
  1. ZOLPIDEM [Suspect]
     Indication: INSOMNIA
     Route: 048
     Dates: start: 20121001, end: 20130701
  2. BENICAR [Concomitant]
  3. PRAVASTATIN SODIUM [Concomitant]
  4. ASPIRIN [Concomitant]
  5. B-COMPLEX W/VITAMIN B-12 [Concomitant]

REACTIONS (10)
  - Drug dose omission [None]
  - Drug withdrawal syndrome [None]
  - Insomnia [None]
  - Restlessness [None]
  - Tremor [None]
  - Palpitations [None]
  - Crying [None]
  - Fear of death [None]
  - Feeling abnormal [None]
  - Tachyphrenia [None]
